FAERS Safety Report 4991296-6 (Version None)
Quarter: 2006Q2

REPORT INFORMATION
  Report Type: 
  Country: None (occurrence: None)
  Receive Date: 20060428
  Receipt Date: 20060417
  Transmission Date: 20061013
  Serious: Yes (Other)
  Sender: FDA-Public Use
  Company Number: 2006022092

PATIENT
  Age: 48 Year
  Sex: Female
  Weight: 67.1324 kg

DRUGS (9)
  1. DETROL LA [Suspect]
     Indication: HYPERTONIC BLADDER
     Dosage: 2 MG (2 MG, 1 IN 1 D), ORAL
     Route: 048
     Dates: start: 20060113
  2. CELEXA [Suspect]
     Indication: ANXIETY
     Dates: start: 20051101
  3. CELEXA [Suspect]
     Indication: DEPRESSION
     Dates: start: 20051101
  4. PROLIXIN [Suspect]
     Indication: ANXIETY
     Dosage: 2.5 MG, Q 2 WKS
     Dates: start: 20051201
  5. PROLIXIN [Suspect]
     Indication: DEPRESSION
     Dosage: 2.5 MG, Q 2 WKS
     Dates: start: 20051201
  6. SYNTHROID [Suspect]
     Indication: THYROID DISORDER
  7. LORAZEPAM [Suspect]
     Indication: ANXIETY
     Dates: start: 20060101
  8. LORAZEPAM [Suspect]
     Indication: DEPRESSION
     Dates: start: 20060101
  9. ARTANE [Suspect]
     Indication: TREMOR
     Dates: start: 20060202

REACTIONS (5)
  - DRUG INTERACTION [None]
  - DYSURIA [None]
  - MUSCULOSKELETAL STIFFNESS [None]
  - THYROID FUNCTION TEST ABNORMAL [None]
  - TREMOR [None]
